FAERS Safety Report 21608938 (Version 1)
Quarter: 2022Q4

REPORT INFORMATION
  Report Type: Spontaneous
  Country: US (occurrence: None)
  Receive Date: 20221116
  Receipt Date: 20221116
  Transmission Date: 20230112
  Serious: Yes (Disabling)
  Sender: FDA-Public Use
  Company Number: None

PATIENT
  Age: 32 Year
  Sex: Female

DRUGS (2)
  1. PARAGARD T 380A [Suspect]
     Active Substance: COPPER
     Indication: Contraception
     Dosage: OTHER QUANTITY : 1 INTERUTERIN;?OTHER FREQUENCY : 10 YEARS;?
     Route: 067
     Dates: start: 20120420, end: 20221107
  2. PREDNISONE [Concomitant]
     Active Substance: PREDNISONE

REACTIONS (2)
  - Metal poisoning [None]
  - Blood copper [None]

NARRATIVE: CASE EVENT DATE: 20221107
